FAERS Safety Report 14291083 (Version 4)
Quarter: 2019Q1

REPORT INFORMATION
  Report Type: Report from Study
  Country: JP (occurrence: JP)
  Receive Date: 20171215
  Receipt Date: 20190315
  Transmission Date: 20190417
  Serious: Yes (Hospitalization, Other)
  Sender: FDA-Public Use
  Company Number: JP-AMGEN-JPNSP2017185803

PATIENT
  Age: 47 Year
  Sex: Male
  Weight: 84.4 kg

DRUGS (16)
  1. LENALIDOMIDE [Concomitant]
     Active Substance: LENALIDOMIDE
     Dosage: 5 MILLIGRAM, QD
     Route: 048
     Dates: start: 20161019, end: 20161108
  2. LENALIDOMIDE [Concomitant]
     Active Substance: LENALIDOMIDE
     Dosage: 5 MILLIGRAM, QD
     Route: 048
     Dates: start: 20170206, end: 20170226
  3. ENDOXAN [CYCLOPHOSPHAMIDE MONOHYDRATE] [Concomitant]
     Active Substance: CYCLOPHOSPHAMIDE
     Dosage: 7000 MG, SINGLE
     Route: 042
     Dates: start: 20161114, end: 20161114
  4. ACICLOVIR [ACICLOVIR SODIUM] [Concomitant]
     Indication: HERPES VIRUS INFECTION
     Dosage: 200 MILLIGRAM
     Route: 048
  5. CARFILZOMIB [Suspect]
     Active Substance: CARFILZOMIB
     Dosage: 27 MG/M2/DAY(2016/11/2,11/4,12/7,12/8,12/14,12/15,12/21,12/22)
     Route: 041
     Dates: start: 20161102, end: 20161222
  6. CARFILZOMIB [Suspect]
     Active Substance: CARFILZOMIB
     Dosage: 27 MG/M2/DAY(2017/2/6,2/7,2/13,2/14,2/20,2/21,11/13,11/21)
     Route: 041
     Dates: start: 20170206, end: 20171121
  7. LENADEX [Suspect]
     Active Substance: DEXAMETHASONE ACETATE
     Dosage: 40 MG/DAY(2016/12/21,2017/2/6,2/13,2/20,11/13,11/27,11/28)
     Route: 065
     Dates: start: 20161221, end: 20171113
  8. LENALIDOMIDE [Concomitant]
     Active Substance: LENALIDOMIDE
     Dosage: 5 MILLIGRAM, QD
     Route: 048
     Dates: start: 20171113, end: 20171114
  9. LENADEX [Suspect]
     Active Substance: DEXAMETHASONE ACETATE
     Dosage: 20 MG/DAY(2017/11/27,11/28,12/11,12/12,12/25,12/26)
     Route: 065
     Dates: start: 20171127, end: 20171226
  10. LENALIDOMIDE [Concomitant]
     Active Substance: LENALIDOMIDE
     Dosage: 5 MILLIGRAM, QD
     Route: 048
     Dates: start: 20161207, end: 20161227
  11. ENDOXAN [CYCLOPHOSPHAMIDE MONOHYDRATE] [Concomitant]
     Active Substance: CYCLOPHOSPHAMIDE
     Dosage: 7000 MG, SINGLE
     Route: 042
     Dates: start: 20170111, end: 20170111
  12. CARFILZOMIB [Suspect]
     Active Substance: CARFILZOMIB
     Dosage: 27 MG/M2/DAY(2016/9/28,9/29,10/5,10/6,10/19,10/20,10/26,10/27)
     Route: 041
     Dates: start: 20160928, end: 20161027
  13. CARFILZOMIB [Suspect]
     Active Substance: CARFILZOMIB
     Dosage: 27 MG/M2/DAY(2017/11/27,11/28,12/11,12/12,12/25,12/26)
     Route: 041
     Dates: start: 20171127, end: 20171226
  14. CARFILZOMIB [Suspect]
     Active Substance: CARFILZOMIB
     Indication: PLASMA CELL MYELOMA
     Dosage: 20 MILLIGRAM/SQ. METER
     Route: 041
     Dates: start: 20160921, end: 20160922
  15. LENADEX [Suspect]
     Active Substance: DEXAMETHASONE ACETATE
     Indication: PLASMA CELL MYELOMA
     Dosage: 40 MG/DAY(2016/9/21,9/28,10/5,10/19,10/26,11/2,12/7,12/14)
     Route: 065
     Dates: start: 20160921, end: 20161214
  16. LENALIDOMIDE [Concomitant]
     Active Substance: LENALIDOMIDE
     Indication: PLASMA CELL MYELOMA
     Dosage: 25 MILLIGRAM, QD
     Route: 048
     Dates: start: 20160921, end: 20161011

REACTIONS (2)
  - Quadriplegia [Recovered/Resolved]
  - Hypokalaemia [Recovered/Resolved]

NARRATIVE: CASE EVENT DATE: 20171114
